FAERS Safety Report 9617649 (Version 2)
Quarter: 2013Q4

REPORT INFORMATION
  Report Type: Report from Study
  Country: US (occurrence: US)
  Receive Date: 20131011
  Receipt Date: 20131220
  Transmission Date: 20140711
  Serious: Yes (Hospitalization)
  Sender: FDA-Public Use
  Company Number: US-ABBVIE-13P-163-1155168-00

PATIENT
  Age: 26 Year
  Sex: Male
  Weight: 57.6 kg

DRUGS (9)
  1. HUMIRA [Suspect]
     Indication: CROHN^S DISEASE
     Route: 058
  2. HUMIRA [Suspect]
  3. ENTOCORT [Concomitant]
     Indication: PRODUCT USED FOR UNKNOWN INDICATION
  4. TOPROL [Concomitant]
     Indication: HYPERTENSION
  5. PROZAC [Concomitant]
     Indication: ANXIETY
  6. BUSPAR [Concomitant]
     Indication: ANXIETY
  7. IRON [Concomitant]
     Indication: ANAEMIA
  8. MULTIVITAMIN [Concomitant]
     Indication: PRODUCT USED FOR UNKNOWN INDICATION
  9. CALTRATE [Concomitant]
     Indication: OSTEOPENIA
     Dosage: DAILY

REACTIONS (9)
  - Intestinal resection [Recovered/Resolved]
  - Intestinal resection [Recovered/Resolved]
  - Intestinal stenosis [Recovered/Resolved]
  - Intestinal stenosis [Recovered/Resolved]
  - Intestinal stenosis [Unknown]
  - Intestinal stenosis [Unknown]
  - Infected cyst [Unknown]
  - Vomiting [Unknown]
  - Dehydration [Unknown]
